FAERS Safety Report 9269798 (Version 3)
Quarter: 2013Q2

REPORT INFORMATION
  Report Type: Spontaneous
  Country: DK (occurrence: DK)
  Receive Date: 20130503
  Receipt Date: 20130523
  Transmission Date: 20140414
  Serious: Yes (Other)
  Sender: FDA-Public Use
  Company Number: DK-SANOFI-AVENTIS-2013SA043055

PATIENT
  Age: 45 Year
  Sex: Female

DRUGS (11)
  1. DOCETAXEL [Suspect]
     Indication: HER-2 POSITIVE BREAST CANCER
     Route: 065
  2. HERCEPTIN [Suspect]
     Indication: HER-2 POSITIVE BREAST CANCER
     Route: 065
     Dates: start: 201208
  3. HERCEPTIN [Suspect]
     Indication: HER-2 POSITIVE BREAST CANCER
     Route: 065
  4. XELODA [Suspect]
     Indication: PRODUCT USED FOR UNKNOWN INDICATION
     Route: 065
     Dates: start: 201208
  5. TAMOXIFEN [Suspect]
     Indication: PRODUCT USED FOR UNKNOWN INDICATION
     Route: 065
  6. VINORELBINE [Suspect]
     Indication: PRODUCT USED FOR UNKNOWN INDICATION
     Route: 065
  7. LAPATINIB [Suspect]
     Indication: PRODUCT USED FOR UNKNOWN INDICATION
     Route: 065
     Dates: start: 201301
  8. PACLITAXEL [Suspect]
     Indication: PRODUCT USED FOR UNKNOWN INDICATION
     Route: 065
     Dates: start: 201301
  9. NEULASTA [Suspect]
     Indication: PRODUCT USED FOR UNKNOWN INDICATION
     Route: 065
  10. THERAPEUTIC RADIOPHARMACEUTICALS [Concomitant]
     Dosage: 2 GY X 25 AT THE THORACIC WALL
  11. THERAPEUTIC RADIOPHARMACEUTICALS [Concomitant]
     Dosage: BOOST 2 GY X 11 AT THE INFLAMED AREA

REACTIONS (3)
  - Skin cancer [Not Recovered/Not Resolved]
  - Disease progression [Not Recovered/Not Resolved]
  - Neutropenia [Unknown]
